FAERS Safety Report 9934429 (Version 1)
Quarter: 2014Q1

REPORT INFORMATION
  Report Type: Spontaneous
  Country: US (occurrence: US)
  Receive Date: 20140228
  Receipt Date: 20140228
  Transmission Date: 20141002
  Serious: No
  Sender: FDA-Public Use
  Company Number: US-ABBVIE-13P-163-1086305-00

PATIENT
  Age: 65 Year
  Sex: Male

DRUGS (8)
  1. VALPROIC ACID [Suspect]
     Indication: BALLISMUS
     Dosage: 1500 MG DAILY
  2. VALPROIC ACID [Suspect]
     Indication: CHOREA
  3. RISPERIDONE [Suspect]
     Indication: BALLISMUS
     Dosage: 1 MG DAILY
  4. RISPERIDONE [Suspect]
     Indication: CHOREA
  5. BACLOFEN [Suspect]
     Indication: BALLISMUS
     Dosage: 30 MG DAILY
  6. BACLOFEN [Suspect]
     Indication: CHOREA
  7. HALOPERIDOL [Suspect]
     Indication: BALLISMUS
     Dosage: 3.5 MG DAILY
  8. HALOPERIDOL [Suspect]
     Indication: CHOREA

REACTIONS (2)
  - Sedation [Unknown]
  - Therapeutic response decreased [Unknown]
